FAERS Safety Report 7447625-7 (Version None)
Quarter: 2011Q2

REPORT INFORMATION
  Report Type: 
  Country: None (occurrence: None)
  Receive Date: 20110429
  Receipt Date: 20110113
  Transmission Date: 20111010
  Serious: No
  Sender: FDA-Public Use
  Company Number: US-ASTRAZENECA-2011SE02520

PATIENT
  Age: 185 Month
  Sex: Female
  Weight: 36.3 kg

DRUGS (7)
  1. NEXIUM [Suspect]
     Dosage: USED FROM A SAMPLE BOTTLE
     Route: 048
     Dates: start: 20110113
  2. TRILEPTAL [Concomitant]
  3. NEXIUM [Suspect]
     Indication: RETT'S DISORDER
     Route: 048
     Dates: start: 19990101
  4. NEXIUM [Suspect]
     Route: 048
     Dates: start: 20110101
  5. NEXIUM [Suspect]
     Dosage: USED FROM A SAMPLE BOTTLE
     Route: 048
     Dates: start: 20110113
  6. NEXIUM [Suspect]
     Indication: GASTROOESOPHAGEAL REFLUX DISEASE
     Route: 048
     Dates: start: 19990101
  7. NEXIUM [Suspect]
     Route: 048
     Dates: start: 20110101

REACTIONS (3)
  - DRUG INEFFECTIVE [None]
  - WRONG TECHNIQUE IN DRUG USAGE PROCESS [None]
  - SCREAMING [None]
